FAERS Safety Report 8766879 (Version 1)
Quarter: 2012Q4

REPORT INFORMATION
  Report Type: 
  Country: US (occurrence: US)
  Receive Date: 20120904
  Receipt Date: 20120904
  Transmission Date: 20130627
  Serious: No
  Sender: FDA-Public Use
  Company Number: US-MYLANLABS-2011S1019867

PATIENT
  Sex: Female

DRUGS (2)
  1. ENALAPRIL MALEATE TABLETS, USP [Suspect]
     Indication: BLOOD PRESSURE
     Route: 048
     Dates: start: 2011
  2. SYNTHROID [Concomitant]
     Indication: HYPOTHYROIDISM
     Route: 048
     Dates: start: 1991

REACTIONS (3)
  - Dyspnoea [Not Recovered/Not Resolved]
  - Irritability [Not Recovered/Not Resolved]
  - Somnolence [Not Recovered/Not Resolved]
